FAERS Safety Report 4422909-5 (Version None)
Quarter: 2004Q3

REPORT INFORMATION
  Report Type: 
  Country: None (occurrence: None)
  Receive Date: 20040811
  Receipt Date: 20040806
  Transmission Date: 20050211
  Serious: Yes (Hospitalization)
  Sender: FDA-Public Use
  Company Number: 200417800GDDC

PATIENT
  Age: 52 Year
  Sex: Male
  Weight: 77 kg

DRUGS (1)
  1. GAVISCON [Suspect]
     Indication: GASTROOESOPHAGEAL REFLUX DISEASE
     Dosage: DOSE: UNK
     Route: 048
     Dates: start: 20030101, end: 20030101

REACTIONS (1)
  - NEPHROLITHIASIS [None]
